FAERS Safety Report 15809727 (Version 1)
Quarter: 2019Q1

REPORT INFORMATION
  Report Type: Spontaneous
  Country: US (occurrence: US)
  Receive Date: 20190111
  Receipt Date: 20190111
  Transmission Date: 20190417
  Serious: No
  Sender: FDA-Public Use
  Company Number: US-ROCHE-2075031

PATIENT
  Sex: Female

DRUGS (2)
  1. RITUXAN [Suspect]
     Active Substance: RITUXIMAB
     Indication: REMISSION NOT ACHIEVED
     Route: 042
  2. BENDEKA [Concomitant]
     Active Substance: BENDAMUSTINE HYDROCHLORIDE

REACTIONS (3)
  - Rash [Unknown]
  - Swelling face [Unknown]
  - Dyspnoea [Unknown]
